FAERS Safety Report 7339023-1 (Version None)
Quarter: 2011Q1

REPORT INFORMATION
  Report Type: 
  Country: None (occurrence: None)
  Receive Date: 20110308
  Receipt Date: 20110222
  Transmission Date: 20110831
  Serious: Yes (Other)
  Sender: FDA-Public Use
  Company Number: US-JNJFOC-20110302395

PATIENT
  Age: 46 Year
  Sex: Female
  Weight: 36.29 kg

DRUGS (3)
  1. MYLANTA ULTIMATE STRENGTH CHERRY [Suspect]
     Indication: GASTROOESOPHAGEAL REFLUX DISEASE
     Dosage: 2-3 CHEWABLE TABLETS A DAY
     Route: 048
  2. MAALOX [Suspect]
     Indication: GASTROOESOPHAGEAL REFLUX DISEASE
  3. TYLENOL [Concomitant]
     Indication: PAIN
     Route: 048

REACTIONS (1)
  - NEPHROLITHIASIS [None]
